FAERS Safety Report 18455362 (Version 1)
Quarter: 2020Q4

REPORT INFORMATION
  Report Type: Other
  Country: AU (occurrence: AU)
  Receive Date: 20201103
  Receipt Date: 20201103
  Transmission Date: 20210114
  Serious: Yes (Other)
  Sender: FDA-Public Use
  Company Number: AU-ROCHE-2706951

PATIENT

DRUGS (2)
  1. PERTUZUMAB. [Suspect]
     Active Substance: PERTUZUMAB
     Indication: HER2 POSITIVE BREAST CANCER
     Route: 065
  2. TRASTUZUMAB. [Concomitant]
     Active Substance: TRASTUZUMAB
     Route: 065

REACTIONS (2)
  - Diarrhoea [Unknown]
  - Sepsis [Unknown]
